FAERS Safety Report 7322630-X (Version None)
Quarter: 2011Q1

REPORT INFORMATION
  Report Type: 
  Country: None (occurrence: None)
  Receive Date: 20110301
  Receipt Date: 20110227
  Transmission Date: 20110831
  Serious: No
  Sender: FDA-Public Use
  Company Number: US-PFIZER INC-2011042103

PATIENT
  Sex: Female
  Weight: 67.574 kg

DRUGS (4)
  1. SIMVASTATIN [Concomitant]
     Indication: BLOOD CHOLESTEROL ABNORMAL
     Dosage: 40 MG, 1X/DAY
     Route: 048
  2. LEVOTHYROXINE [Concomitant]
     Indication: THYROID DISORDER
     Dosage: UNK
  3. ADVIL COLD AND SINUS [Suspect]
     Indication: BRONCHITIS
  4. ADVIL COLD AND SINUS [Suspect]
     Indication: SINUSITIS
     Dosage: UNK
     Route: 048
     Dates: start: 20110226, end: 20110226

REACTIONS (2)
  - FAECES HARD [None]
  - MUSCLE SPASMS [None]
